FAERS Safety Report 8327642-5 (Version None)
Quarter: 2012Q2

REPORT INFORMATION
  Report Type: 
  Country: None (occurrence: None)
  Receive Date: 20120502
  Receipt Date: 20120423
  Transmission Date: 20120825
  Serious: Yes (Hospitalization)
  Sender: FDA-Public Use
  Company Number: US-BAYER-2011-050093

PATIENT
  Age: 49 Year
  Sex: Female
  Weight: 65.76 kg

DRUGS (5)
  1. YASMIN [Suspect]
     Indication: ORAL CONTRACEPTION
     Dosage: UNK
     Dates: start: 20050101, end: 20090601
  2. YAZ [Suspect]
     Indication: ORAL CONTRACEPTION
     Dosage: UNK
     Dates: start: 20050101, end: 20090601
  3. BETA BLOCKING AGENTS [Concomitant]
  4. BETA BLOCKING AGENTS [Concomitant]
  5. BISOPROLOL FUMARATE AND HYDROCHLOROTHIAZIDE [Concomitant]

REACTIONS (2)
  - INJURY [None]
  - MYOCARDIAL INFARCTION [None]
